FAERS Safety Report 5733631-7 (Version None)
Quarter: 2008Q2

REPORT INFORMATION
  Report Type: 
  Country: None (occurrence: None)
  Receive Date: 20080509
  Receipt Date: 20080506
  Transmission Date: 20081010
  Serious: Yes (Hospitalization)
  Sender: FDA-Public Use
  Company Number: DE-WYE-G01502408

PATIENT
  Age: 45 Year
  Sex: Female
  Weight: 65 kg

DRUGS (6)
  1. VENLAFAXINE HCL [Suspect]
     Dosage: 1 CAPSULE (OVERDOSE AMOUNT 150 MG)
     Route: 048
     Dates: start: 20080506, end: 20080506
  2. ZOPICLONE [Suspect]
     Dosage: OVERDOSE AMOUNT 150 MG
     Route: 048
     Dates: start: 20080506, end: 20080506
  3. RISPERIDONE [Suspect]
     Dosage: OVERDOSE AMOUNT 30 MG
     Route: 048
     Dates: start: 20080506, end: 20080506
  4. VALPROATE SODIUM [Suspect]
     Dosage: OVERDOSE AMOUNT 500 MG
     Route: 048
     Dates: start: 20080506, end: 20080506
  5. DIAZEPAM [Suspect]
     Dosage: 20 DROPS (OVERDOSE AMOUNT UNKNOWN)
     Route: 048
     Dates: start: 20080506, end: 20080506
  6. PROMETHAZINE [Suspect]
     Dosage: 20 DROPS (OVERDOSE AMOUNT UNKNOWN)
     Route: 048
     Dates: start: 20080506, end: 20080506

REACTIONS (4)
  - DYSARTHRIA [None]
  - INTENTIONAL OVERDOSE [None]
  - SUICIDE ATTEMPT [None]
  - TACHYCARDIA [None]
